FAERS Safety Report 23069198 (Version 1)
Quarter: 2023Q4

REPORT INFORMATION
  Report Type: Spontaneous
  Country: US (occurrence: US)
  Receive Date: 20231016
  Receipt Date: 20231016
  Transmission Date: 20240109
  Serious: Yes (Hospitalization)
  Sender: FDA-Public Use
  Company Number: US-AMGEN-USASP2023183673

PATIENT
  Age: 40 Year
  Sex: Male

DRUGS (1)
  1. INFLIXIMAB [Suspect]
     Active Substance: INFLIXIMAB
     Indication: Crohn^s disease
     Dosage: UNK
     Route: 065

REACTIONS (5)
  - Intraventricular haemorrhage [Unknown]
  - Basal ganglia haemorrhage [Unknown]
  - Spinal cord haemorrhage [Unknown]
  - Hydrocephalus [Recovered/Resolved]
  - Klebsiella test positive [Unknown]
